FAERS Safety Report 8883318 (Version 2)
Quarter: 2012Q4

REPORT INFORMATION
  Report Type: Report from Study
  Country: JP (occurrence: JP)
  Receive Date: 20121102
  Receipt Date: 20121213
  Transmission Date: 20130627
  Serious: Yes (Other)
  Sender: FDA-Public Use
  Company Number: JP-JNJFOC-20121015836

PATIENT
  Age: 59 Year
  Sex: Male
  Weight: 68 kg

DRUGS (23)
  1. STELARA [Suspect]
     Indication: PSORIASIS
     Route: 058
     Dates: start: 20120125
  2. STELARA [Suspect]
     Indication: PSORIASIS
     Route: 058
     Dates: start: 20120222
  3. ISONIAZID [Suspect]
     Indication: PROPHYLAXIS
     Route: 048
     Dates: start: 20120111, end: 20120221
  4. RIFAMPICIN [Suspect]
     Indication: PROPHYLAXIS
     Route: 048
     Dates: start: 20120409, end: 20120515
  5. TIGASON [Concomitant]
     Indication: PSORIASIS
     Route: 048
     Dates: start: 20110916, end: 20120221
  6. NERISONA [Concomitant]
     Indication: PSORIASIS
     Route: 061
     Dates: start: 20110916
  7. ECLAR [Concomitant]
     Indication: PSORIASIS
     Route: 061
     Dates: start: 20111014
  8. CLARITHROMYCIN [Concomitant]
     Route: 048
     Dates: start: 20111014, end: 20120221
  9. PREMINENT [Concomitant]
     Route: 048
  10. BAYASPIRIN [Concomitant]
     Route: 048
  11. OMEPRAL [Concomitant]
     Route: 048
  12. TERNELIN [Concomitant]
     Route: 048
  13. MYSLEE [Concomitant]
     Route: 048
  14. HERBESSER R [Concomitant]
     Route: 048
  15. AMLODIN OD [Concomitant]
     Route: 048
  16. PREDONINE [Concomitant]
     Route: 048
  17. CRESTOR [Concomitant]
     Route: 048
  18. CETIRIZINE HYDROCHLORIDE [Concomitant]
     Route: 048
  19. ETIZOLAM [Concomitant]
  20. GASMOTIN [Concomitant]
     Route: 048
  21. SIGMART [Concomitant]
  22. CEREKINON [Concomitant]
     Route: 048
  23. GASCON [Concomitant]
     Route: 048

REACTIONS (2)
  - Liver disorder [Recovered/Resolved]
  - Hypoaesthesia [Recovered/Resolved]
